FAERS Safety Report 16326408 (Version 2)
Quarter: 2019Q3

REPORT INFORMATION
  Report Type: Spontaneous
  Country: ZA (occurrence: ZA)
  Receive Date: 20190517
  Receipt Date: 20190809
  Transmission Date: 20191004
  Serious: Yes (Hospitalization, Other)
  Sender: FDA-Public Use
  Company Number: ZA-BAUSCH-BL-2019-014347

PATIENT
  Age: 15 Year
  Sex: Female

DRUGS (5)
  1. ENALAPRIL [Suspect]
     Active Substance: ENALAPRIL
     Indication: CARDIOMETABOLIC SYNDROME
     Route: 065
  2. INSULIN [Suspect]
     Active Substance: INSULIN NOS
     Indication: DIABETIC KETOACIDOSIS
     Route: 058
  3. BEZAFIBRATE [Suspect]
     Active Substance: BEZAFIBRATE
     Indication: CARDIOMETABOLIC SYNDROME
     Route: 065
  4. INSULIN [Suspect]
     Active Substance: INSULIN NOS
     Indication: CARDIOMETABOLIC SYNDROME
     Route: 065
  5. METFORMIN [Suspect]
     Active Substance: METFORMIN HYDROCHLORIDE
     Indication: CARDIOMETABOLIC SYNDROME
     Route: 065

REACTIONS (1)
  - Treatment noncompliance [Unknown]
